FAERS Safety Report 5872040-7 (Version None)
Quarter: 2008Q3

REPORT INFORMATION
  Report Type: 
  Country: None (occurrence: None)
  Receive Date: 20080905
  Receipt Date: 20080827
  Transmission Date: 20090109
  Serious: Yes (Other)
  Sender: FDA-Public Use
  Company Number: US-BAYER-200813403BCC

PATIENT
  Age: 66 Year
  Sex: Male
  Weight: 101 kg

DRUGS (6)
  1. ALEVE (CAPLET) [Suspect]
     Indication: BACK PAIN
     Route: 048
  2. ASPIRIN [Suspect]
     Indication: BACK PAIN
     Route: 048
  3. ATENOLOL [Concomitant]
  4. MOTRIN [Concomitant]
     Indication: BACK PAIN
     Route: 048
  5. PREDNISONE TAB [Concomitant]
     Indication: BACK PAIN
     Route: 048
     Dates: start: 20080101
  6. EPIDURAL STEROID INJECTIONS X 3 [Concomitant]
     Indication: BACK PAIN

REACTIONS (1)
  - BLOOD POTASSIUM INCREASED [None]
